FAERS Safety Report 4637735-1 (Version None)
Quarter: 2005Q2

REPORT INFORMATION
  Report Type: 
  Country: None (occurrence: None)
  Receive Date: 20050418
  Receipt Date: 20050112
  Transmission Date: 20051028
  Serious: Yes (Hospitalization)
  Sender: FDA-Public Use
  Company Number: US-MERCK-0501USA01214

PATIENT
  Age: 65 Year
  Sex: Male
  Weight: 125 kg

DRUGS (9)
  1. VIOXX [Suspect]
     Indication: ARTHRITIS
     Route: 048
     Dates: start: 20010905, end: 20040901
  2. VIOXX [Suspect]
     Indication: JOINT INJURY
     Route: 048
     Dates: start: 20010905, end: 20040901
  3. ASPIRIN [Concomitant]
     Route: 065
     Dates: start: 20020101
  4. ATENOLOL [Concomitant]
     Route: 065
  5. NEXIUM [Concomitant]
     Route: 065
  6. LASIX [Concomitant]
     Route: 065
  7. PREVACID [Concomitant]
     Indication: GASTROOESOPHAGEAL REFLUX DISEASE
     Route: 065
     Dates: start: 20011029, end: 20020101
  8. GLUCOSAMINE [Concomitant]
     Route: 065
  9. KLOR-CON [Concomitant]
     Route: 065

REACTIONS (23)
  - ALLERGIC SINUSITIS [None]
  - CARTILAGE INJURY [None]
  - CEREBROVASCULAR ACCIDENT [None]
  - CERUMEN IMPACTION [None]
  - CORONARY ARTERY DISEASE [None]
  - CYST [None]
  - DYSPNOEA [None]
  - EMOTIONAL DISTRESS [None]
  - EYE HAEMORRHAGE [None]
  - FALL [None]
  - GASTROOESOPHAGEAL REFLUX DISEASE [None]
  - GLAUCOMA [None]
  - INTESTINAL FUNCTIONAL DISORDER [None]
  - LUMBAR RADICULOPATHY [None]
  - MITRAL VALVE INCOMPETENCE [None]
  - OEDEMA [None]
  - OEDEMA PERIPHERAL [None]
  - PLEURAL EFFUSION [None]
  - SEBORRHOEIC KERATOSIS [None]
  - SINUSITIS [None]
  - TINEA PEDIS [None]
  - TRICUSPID VALVE INCOMPETENCE [None]
  - VENTRICULAR HYPERTROPHY [None]
